FAERS Safety Report 24246719 (Version 1)
Quarter: 2024Q3

REPORT INFORMATION
  Report Type: Spontaneous
  Country: JP (occurrence: JP)
  Receive Date: 20240826
  Receipt Date: 20240826
  Transmission Date: 20241016
  Serious: Yes (Life-Threatening, Other)
  Sender: SANDOZ
  Company Number: JP-SANDOZ INC.-SDZ2024JP074507

PATIENT
  Age: 62 Year
  Sex: Female

DRUGS (1)
  1. XYLOCAINE [Suspect]
     Active Substance: LIDOCAINE HYDROCHLORIDE\LIDOCAINE HYDROCHLORIDE ANHYDROUS
     Indication: Local anaesthesia
     Dosage: UNK

REACTIONS (4)
  - Local anaesthetic systemic toxicity [Unknown]
  - Shock [Unknown]
  - Disseminated intravascular coagulation [Recovered/Resolved]
  - Cerebral infarction [Unknown]
